FAERS Safety Report 7583905-2 (Version None)
Quarter: 2011Q2

REPORT INFORMATION
  Report Type: 
  Country: None (occurrence: None)
  Receive Date: 20110628
  Receipt Date: 20110628
  Transmission Date: 20111010
  Serious: Yes (Life-Threatening, Hospitalization)
  Sender: FDA-Public Use
  Company Number: None

PATIENT
  Age: 72 Year
  Sex: Female
  Weight: 90.9 kg

DRUGS (1)
  1. CYMBALTA [Suspect]
     Indication: PAIN MANAGEMENT
     Dosage: 30MG ONCE A DAY ORAL
     Route: 048
     Dates: start: 20110525, end: 20110530

REACTIONS (1)
  - BLOOD PRESSURE DECREASED [None]
